FAERS Safety Report 10270851 (Version 1)
Quarter: 2014Q2

REPORT INFORMATION
  Report Type: Spontaneous
  Country: US (occurrence: None)
  Receive Date: 20140627
  Receipt Date: 20140627
  Transmission Date: 20141212
  Serious: Yes (Other)
  Sender: FDA-Public Use
  Company Number: US-ACS-000021

PATIENT
  Sex: Male

DRUGS (1)
  1. CEFTRIAXONE [Suspect]
     Dosage: 3 INJECTIONS?(NOT OTHERWISE SPECIFIED)
     Route: 042

REACTIONS (4)
  - Abdominal discomfort [None]
  - Nasopharyngitis [None]
  - Asthenia [None]
  - Lethargy [None]
